FAERS Safety Report 8659992 (Version 2)
Quarter: 2012Q4

REPORT INFORMATION
  Report Type: 
  Country: GB (occurrence: GB)
  Receive Date: 20120711
  Receipt Date: 20120829
  Transmission Date: 20130627
  Serious: Yes (Other)
  Sender: FDA-Public Use
  Company Number: GB-BAYER-2012-068023

PATIENT
  Age: 37 Year
  Sex: Female
  Weight: 76 kg

DRUGS (4)
  1. MIRENA [Suspect]
     Route: 015
  2. DULOXETINE HYDROCHLORIDE [Concomitant]
  3. HUMALOG [Concomitant]
  4. VENTOLIN [Concomitant]

REACTIONS (4)
  - Headache [Recovered/Resolved]
  - Mood swings [Recovered/Resolved]
  - Palpitations [Recovered/Resolved]
  - Dyspnoea [Recovered/Resolved]
